FAERS Safety Report 11647665 (Version 1)
Quarter: 2015Q4

REPORT INFORMATION
  Report Type: Spontaneous
  Country: US (occurrence: US)
  Receive Date: 20151021
  Receipt Date: 20151021
  Transmission Date: 20160304
  Serious: No
  Sender: FDA-Public Use
  Company Number: US-TEVA-562165USA

PATIENT
  Age: 62 Year
  Sex: Female

DRUGS (1)
  1. ESTRADIOL. [Suspect]
     Active Substance: ESTRADIOL
     Indication: PRODUCT USED FOR UNKNOWN INDICATION
     Dosage: DOSE AND FREQUENCY NOT PROVIDED
     Route: 065

REACTIONS (7)
  - Hyperhidrosis [Unknown]
  - Ligament sprain [Unknown]
  - Drug ineffective [Unknown]
  - Insomnia [Unknown]
  - Hot flush [Unknown]
  - Feeling abnormal [Unknown]
  - Agitation [Unknown]
